FAERS Safety Report 8045335-9 (Version None)
Quarter: 2012Q1

REPORT INFORMATION
  Report Type: 
  Country: None (occurrence: None)
  Receive Date: 20120110
  Receipt Date: 20111227
  Transmission Date: 20120608
  Serious: Yes (Hospitalization, Other)
  Sender: FDA-Public Use
  Company Number: 2011MA018145

PATIENT
  Age: 51 Year
  Sex: Female

DRUGS (4)
  1. TOPIRAMATE [Concomitant]
  2. SERTRALINE HYDROCHLORIDE [Concomitant]
  3. TRIAMCINOLONE ACETONIDE [Suspect]
     Indication: OSTEOARTHRITIS
     Dosage: 40 MG; IA
     Route: 013
  4. C-THYROXINE [Concomitant]

REACTIONS (3)
  - SUICIDE ATTEMPT [None]
  - PARANOIA [None]
  - AGITATION [None]
